FAERS Safety Report 22590107 (Version 1)
Quarter: 2023Q2

REPORT INFORMATION
  Report Type: Spontaneous
  Country: US (occurrence: None)
  Receive Date: 20230609
  Receipt Date: 20230609
  Transmission Date: 20230722
  Serious: Yes (Hospitalization)
  Sender: FDA-Public Use
  Company Number: None

PATIENT
  Sex: Female

DRUGS (21)
  1. EVEROLIMUS [Suspect]
     Active Substance: EVEROLIMUS
     Indication: Breast cancer female
     Dosage: 2T QD PO?
     Route: 048
  2. HEPARIN [Concomitant]
  3. SODIUM CHLORIDE [Concomitant]
     Active Substance: SODIUM CHLORIDE
  4. AMOLODIPINE [Concomitant]
  5. BENAZEPRIL [Concomitant]
  6. BISOPROLOL [Concomitant]
  7. FULVESTRANT [Concomitant]
     Active Substance: FULVESTRANT
  8. DULOXETINE [Concomitant]
  9. ERGOCALCIFEROL [Concomitant]
     Active Substance: ERGOCALCIFEROL
  10. EVEROLIMUS [Concomitant]
     Active Substance: EVEROLIMUS
  11. GABAPENTIN [Concomitant]
  12. LEVOTHYROXINE [Concomitant]
  13. ZOMETA [Concomitant]
     Active Substance: ZOLEDRONIC ACID
  14. VITAMIN D3 [Suspect]
     Active Substance: CHOLECALCIFEROL
  15. DEXAMETHASONE [Concomitant]
     Active Substance: DEXAMETHASONE
  16. LIDOCAINE [Concomitant]
  17. BENADRYL [Concomitant]
     Active Substance: DIPHENHYDRAMINE HYDROCHLORIDE
  18. MAALOX [Concomitant]
  19. SINGULAIR [Concomitant]
     Active Substance: MONTELUKAST SODIUM
  20. PEPCID [Concomitant]
     Active Substance: FAMOTIDINE
  21. PREDNISONE [Concomitant]

REACTIONS (1)
  - Hypersensitivity [None]
